FAERS Safety Report 8100504-4 (Version None)
Quarter: 2012Q1

REPORT INFORMATION
  Report Type: 
  Country: None (occurrence: None)
  Receive Date: 20120129
  Receipt Date: 20111101
  Transmission Date: 20120608
  Serious: No
  Sender: FDA-Public Use
  Company Number: US-ABBOTT-11P-163-0870671-00

PATIENT
  Sex: Female
  Weight: 52.21 kg

DRUGS (4)
  1. HUMIRA [Suspect]
     Indication: PSORIATIC ARTHROPATHY
     Route: 058
     Dates: start: 20111020
  2. DIOVAN [Concomitant]
     Indication: HYPERTENSION
     Dosage: 80/12.5, HALF TAB DAILY
  3. METHOTREXATE [Concomitant]
     Indication: PSORIATIC ARTHROPATHY
  4. PLAQUENIL [Concomitant]
     Indication: PSORIATIC ARTHROPATHY

REACTIONS (1)
  - RASH [None]
